FAERS Safety Report 25440672 (Version 2)
Quarter: 2025Q2

REPORT INFORMATION
  Report Type: Spontaneous
  Country: JP (occurrence: JP)
  Receive Date: 20250616
  Receipt Date: 20250620
  Transmission Date: 20250716
  Serious: Yes (Other)
  Sender: PFIZER
  Company Number: JP-PFIZER INC-PV202500070597

PATIENT
  Age: 53 Year
  Sex: Male

DRUGS (3)
  1. OXALIPLATIN [Suspect]
     Active Substance: OXALIPLATIN
     Indication: Bladder cancer
  2. LEUCOVORIN [Suspect]
     Active Substance: LEUCOVORIN\LEUCOVORIN CALCIUM
     Indication: Bladder cancer
  3. FLUOROURACIL [Suspect]
     Active Substance: FLUOROURACIL
     Indication: Bladder cancer

REACTIONS (3)
  - Neutrophil count decreased [Unknown]
  - Amylase increased [Unknown]
  - Off label use [Unknown]
